FAERS Safety Report 9791399 (Version 2)
Quarter: 2014Q1

REPORT INFORMATION
  Report Type: Report from Study
  Country: GB (occurrence: GB)
  Receive Date: 20140101
  Receipt Date: 20140101
  Transmission Date: 20141002
  Serious: Yes (Other)
  Sender: FDA-Public Use
  Company Number: PHFR2013GB005088

PATIENT
  Sex: Female

DRUGS (1)
  1. GILENYA [Suspect]
     Indication: RELAPSING-REMITTING MULTIPLE SCLEROSIS
     Dosage: 0.5 MG, QD
     Route: 048
     Dates: start: 20130903

REACTIONS (4)
  - Blood pressure decreased [Not Recovered/Not Resolved]
  - Nausea [Recovering/Resolving]
  - Sinus bradycardia [Recovering/Resolving]
  - Dizziness [Recovering/Resolving]
